FAERS Safety Report 5359378-7 (Version None)
Quarter: 2007Q2

REPORT INFORMATION
  Report Type: 
  Country: None (occurrence: None)
  Receive Date: 20070615
  Receipt Date: 20070605
  Transmission Date: 20071010
  Serious: Yes (Death, Hospitalization)
  Sender: FDA-Public Use
  Company Number: GB-PFIZER INC-2006146949

PATIENT
  Sex: Male
  Weight: 75.6 kg

DRUGS (5)
  1. SU-011,248 [Suspect]
     Indication: RENAL CELL CARCINOMA STAGE UNSPECIFIED
     Route: 048
  2. SU-011,248 [Suspect]
     Route: 048
  3. LANSOPRAZOLE [Concomitant]
     Route: 048
  4. DEXAMETHASONE 0.5MG TAB [Concomitant]
     Route: 048
  5. CODEINE PHOSPHATE AND ACETAMINOPHEN [Concomitant]
     Route: 048
     Dates: start: 20051208

REACTIONS (2)
  - HYPOTHYROIDISM [None]
  - METASTASES TO CENTRAL NERVOUS SYSTEM [None]
